FAERS Safety Report 9690375 (Version 1)
Quarter: 2013Q4

REPORT INFORMATION
  Report Type: Spontaneous
  Country: JP (occurrence: JP)
  Receive Date: 20131115
  Receipt Date: 20131115
  Transmission Date: 20140711
  Serious: Yes (Other)
  Sender: FDA-Public Use
  Company Number: JP-SA-2013SA113993

PATIENT
  Age: 57 Year
  Sex: Male

DRUGS (5)
  1. ELPLAT [Suspect]
     Indication: RECTAL CANCER
     Route: 041
  2. CALCIUM LEVOFOLINATE [Concomitant]
  3. 5-FU [Concomitant]
     Dosage: BOLUS
  4. 5-FU [Concomitant]
     Dosage: INFUSION
  5. ADRENALINE [Concomitant]

REACTIONS (2)
  - Fibrinolysis increased [Recovering/Resolving]
  - Anaphylactic shock [Unknown]
